FAERS Safety Report 16074247 (Version 3)
Quarter: 2019Q4

REPORT INFORMATION
  Report Type: Report from Study
  Country: CA (occurrence: CA)
  Receive Date: 20190314
  Receipt Date: 20191211
  Transmission Date: 20200122
  Serious: Yes (Other)
  Sender: FDA-Public Use
  Company Number: PHHY2019CA055003

PATIENT
  Age: 23 Year
  Sex: Male

DRUGS (1)
  1. GILENYA [Suspect]
     Active Substance: FINGOLIMOD HYDROCHLORIDE
     Indication: PRODUCT USED FOR UNKNOWN INDICATION
     Dosage: UNK
     Route: 048
     Dates: start: 20180226

REACTIONS (4)
  - Arrhythmia [Unknown]
  - Expanded disability status scale score increased [Unknown]
  - Wolff-Parkinson-White syndrome [Unknown]
  - Syncope [Unknown]

NARRATIVE: CASE EVENT DATE: 201911
